FAERS Safety Report 8415072-7 (Version None)
Quarter: 2012Q2

REPORT INFORMATION
  Report Type: 
  Country: None (occurrence: None)
  Receive Date: 20120606
  Receipt Date: 20120529
  Transmission Date: 20120825
  Serious: Yes (Hospitalization)
  Sender: FDA-Public Use
  Company Number: US-BAYER-2012-011571

PATIENT
  Age: 39 Year
  Sex: Female
  Weight: 86.168 kg

DRUGS (8)
  1. YASMIN [Suspect]
     Indication: PREMENSTRUAL SYNDROME
     Dosage: UNK
     Dates: start: 20060801, end: 20070101
  2. ZITHROMAX [Concomitant]
  3. ATENOLOL [Concomitant]
     Dosage: 25 MG, UNK
  4. SYNTHROID [Concomitant]
  5. REPLIVA [Concomitant]
     Indication: MINERAL SUPPLEMENTATION
     Dosage: UNK
     Dates: start: 20071216
  6. LEVOTHYROXINE SODIUM [Concomitant]
     Indication: HYPERTENSION
     Dosage: UNK
     Dates: start: 20040101
  7. HYDROCHLOROTHIAZIDE [Concomitant]
     Indication: THYROID DISORDER
     Dosage: UNK
     Dates: start: 20060101, end: 20111001
  8. IRON [Concomitant]

REACTIONS (7)
  - PHYSICAL DISABILITY [None]
  - ANXIETY [None]
  - EMOTIONAL DISTRESS [None]
  - GENERAL PHYSICAL HEALTH DETERIORATION [None]
  - PULMONARY EMBOLISM [None]
  - PULMONARY INFARCTION [None]
  - PAIN [None]
